FAERS Safety Report 6613711-4 (Version None)
Quarter: 2010Q1

REPORT INFORMATION
  Report Type: 
  Country: None (occurrence: None)
  Receive Date: 20100304
  Receipt Date: 20100223
  Transmission Date: 20100710
  Serious: Yes (Other)
  Sender: FDA-Public Use
  Company Number: US-ALEXION-A201000121

PATIENT
  Sex: Female

DRUGS (3)
  1. SOLIRIS [Suspect]
     Indication: PAROXYSMAL NOCTURNAL HAEMOGLOBINURIA
     Dosage: STANDARD DOSING
     Dates: start: 20090801
  2. FOLIC ACID [Concomitant]
  3. PERCOCET [Concomitant]
     Indication: PAIN

REACTIONS (1)
  - BREAST INFECTION [None]
